FAERS Safety Report 7708489-7 (Version None)
Quarter: 2011Q3

REPORT INFORMATION
  Report Type: 
  Country: None (occurrence: None)
  Receive Date: 20110825
  Receipt Date: 20110817
  Transmission Date: 20111222
  Serious: Yes (Other)
  Sender: FDA-Public Use
  Company Number: US-GENZYME-POMP-1001724

PATIENT

DRUGS (13)
  1. BUDESONIDE [Concomitant]
     Indication: PRODUCT USED FOR UNKNOWN INDICATION
     Dosage: UNK PERCENT, UNK
     Dates: start: 20100813
  2. ALBUTEROL SULFATE AUTOHALER [Concomitant]
     Indication: WHEEZING
     Dosage: UNK
     Dates: start: 20100623, end: 20110623
  3. ALLEGRA [Concomitant]
     Indication: PRODUCT USED FOR UNKNOWN INDICATION
     Dosage: UNK
     Dates: start: 20100309, end: 20110319
  4. FORADIL [Concomitant]
     Indication: PRODUCT USED FOR UNKNOWN INDICATION
     Dosage: UNK
     Dates: start: 20110418
  5. FLONASE [Concomitant]
     Indication: PRODUCT USED FOR UNKNOWN INDICATION
     Dosage: UNK
     Dates: start: 20100927
  6. SALINE SPRAY [Concomitant]
     Indication: NASAL IRRIGATION
     Dosage: UNK
     Dates: start: 20080502
  7. ZANTAC [Concomitant]
     Indication: PREMEDICATION
  8. ZYRTEC [Concomitant]
     Indication: PRODUCT USED FOR UNKNOWN INDICATION
     Dosage: 10 MG, QD
     Route: 048
  9. CLARITIN [Concomitant]
     Indication: PREMEDICATION
  10. OXYBUTYNIN [Concomitant]
     Indication: PRODUCT USED FOR UNKNOWN INDICATION
     Dosage: UNK POSITIVE, UNK
     Route: 062
     Dates: start: 20100813, end: 20110813
  11. LUMIZYME [Suspect]
     Indication: GLYCOGEN STORAGE DISEASE TYPE II
     Dosage: 20 MG/KG, Q2W
     Route: 042
     Dates: start: 20100301
  12. TYLENOL-500 [Concomitant]
     Indication: PREMEDICATION
  13. CALCIUM-CHOLECALCIFEROL, D3 [Concomitant]
     Indication: PRODUCT USED FOR UNKNOWN INDICATION
     Dosage: UNK

REACTIONS (3)
  - NAUSEA [None]
  - DYSPEPSIA [None]
  - VOMITING [None]
